FAERS Safety Report 7366405-4 (Version None)
Quarter: 2011Q1

REPORT INFORMATION
  Report Type: 
  Country: None (occurrence: None)
  Receive Date: 20110310
  Receipt Date: 20110225
  Transmission Date: 20110831
  Serious: Yes (Hospitalization)
  Sender: FDA-Public Use
  Company Number: 011160

PATIENT
  Sex: Female
  Weight: 135.3 kg

DRUGS (22)
  1. NEXIUM [Concomitant]
  2. LYRICA [Concomitant]
  3. VOLTAREN EMULGEL /00372301/ [Concomitant]
  4. CERTOLIZUMAB PEGOL [Suspect]
     Indication: RHEUMATOID ARTHRITIS
     Dosage: (200 MG 1X/2 SUBCUTANEOUS)
     Route: 058
     Dates: start: 20091123, end: 20100210
  5. BUSPAR [Concomitant]
  6. PREDNISONE [Concomitant]
  7. SINGULAIR /01362601/ [Concomitant]
  8. EFFEXOR [Concomitant]
  9. L-LYSINE /00919901/ [Concomitant]
  10. TRIAMCINOLONE [Concomitant]
  11. FOLIC ACID [Concomitant]
  12. FLEXERIL [Concomitant]
  13. GABAPENTIN [Concomitant]
  14. CALCIUM CARBONATE [Concomitant]
  15. BISOLVON AMOXYCILINA [Concomitant]
  16. ASCORBIC ACID [Concomitant]
  17. PHENERGAN HCL [Concomitant]
  18. POLYSPORIN /00259001/ [Concomitant]
  19. RELAFEN [Concomitant]
  20. SYNTHROID [Concomitant]
  21. ACYCLOVIR [Concomitant]
  22. LEVAQUIN [Concomitant]

REACTIONS (2)
  - RESTLESS LEGS SYNDROME [None]
  - PNEUMONIA [None]
